FAERS Safety Report 17272651 (Version 1)
Quarter: 2020Q1

REPORT INFORMATION
  Report Type: Spontaneous
  Country: US (occurrence: US)
  Receive Date: 20200115
  Receipt Date: 20200115
  Transmission Date: 20200409
  Serious: No
  Sender: FDA-Public Use
  Company Number: US-PFIZER INC-2020017424

PATIENT
  Sex: Female

DRUGS (12)
  1. ADVIL [Suspect]
     Active Substance: IBUPROFEN
     Indication: PAIN
  2. ALKA-SELTZER PLUS [ACETYLSALICYLIC ACID;CHLORPHENAMINE MALEATE;PHENYLP [Suspect]
     Active Substance: ASPIRIN\CHLORPHENIRAMINE MALEATE\PHENYLPROPANOLAMINE BITARTRATE
     Indication: PAIN
  3. THERAFLU [CHLORPHENAMINE MALEATE;PARACETAMOL;PSEUDOEPHEDRINE HYDROCHLO [Suspect]
     Active Substance: ACETAMINOPHEN\CHLORPHENIRAMINE MALEATE\PSEUDOEPHEDRINE HYDROCHLORIDE
     Indication: HEADACHE
     Dosage: UNK
  4. THERAFLU [CHLORPHENAMINE MALEATE;PARACETAMOL;PSEUDOEPHEDRINE HYDROCHLO [Suspect]
     Active Substance: ACETAMINOPHEN\CHLORPHENIRAMINE MALEATE\PSEUDOEPHEDRINE HYDROCHLORIDE
     Indication: ABDOMINAL PAIN UPPER
  5. ALKA-SELTZER PLUS [ACETYLSALICYLIC ACID;CHLORPHENAMINE MALEATE;PHENYLP [Suspect]
     Active Substance: ASPIRIN\CHLORPHENIRAMINE MALEATE\PHENYLPROPANOLAMINE BITARTRATE
     Indication: ABDOMINAL PAIN UPPER
  6. ADVIL [Suspect]
     Active Substance: IBUPROFEN
     Indication: HEADACHE
     Dosage: UNK
  7. ADVIL [Suspect]
     Active Substance: IBUPROFEN
     Indication: ABDOMINAL PAIN UPPER
  8. ADVIL [Suspect]
     Active Substance: IBUPROFEN
     Indication: INFLUENZA
  9. ALKA-SELTZER PLUS [ACETYLSALICYLIC ACID;CHLORPHENAMINE MALEATE;PHENYLP [Suspect]
     Active Substance: ASPIRIN\CHLORPHENIRAMINE MALEATE\PHENYLPROPANOLAMINE BITARTRATE
     Indication: HEADACHE
     Dosage: UNK
  10. THERAFLU [CHLORPHENAMINE MALEATE;PARACETAMOL;PSEUDOEPHEDRINE HYDROCHLO [Suspect]
     Active Substance: ACETAMINOPHEN\CHLORPHENIRAMINE MALEATE\PSEUDOEPHEDRINE HYDROCHLORIDE
     Indication: PAIN
  11. THERAFLU [CHLORPHENAMINE MALEATE;PARACETAMOL;PSEUDOEPHEDRINE HYDROCHLO [Suspect]
     Active Substance: ACETAMINOPHEN\CHLORPHENIRAMINE MALEATE\PSEUDOEPHEDRINE HYDROCHLORIDE
     Indication: INFLUENZA
  12. ALKA-SELTZER PLUS [ACETYLSALICYLIC ACID;CHLORPHENAMINE MALEATE;PHENYLP [Suspect]
     Active Substance: ASPIRIN\CHLORPHENIRAMINE MALEATE\PHENYLPROPANOLAMINE BITARTRATE
     Indication: INFLUENZA

REACTIONS (1)
  - Drug ineffective [Unknown]

NARRATIVE: CASE EVENT DATE: 201912
